FAERS Safety Report 8071276-7 (Version None)
Quarter: 2012Q1

REPORT INFORMATION
  Report Type: 
  Country: None (occurrence: None)
  Receive Date: 20120125
  Receipt Date: 20120120
  Transmission Date: 20120608
  Serious: Yes (Other)
  Sender: FDA-Public Use
  Company Number: US-JNJFOC-20120109556

PATIENT
  Sex: Male
  Weight: 79.38 kg

DRUGS (1)
  1. SPORANOX [Suspect]
     Indication: PSORIASIS
     Route: 048
     Dates: start: 20100101, end: 20100101

REACTIONS (4)
  - DRUG INEFFECTIVE FOR UNAPPROVED INDICATION [None]
  - WEIGHT DECREASED [None]
  - MUSCLE ATROPHY [None]
  - DECREASED APPETITE [None]
